FAERS Safety Report 23904029 (Version 2)
Quarter: 2024Q3

REPORT INFORMATION
  Report Type: Spontaneous
  Country: JP (occurrence: JP)
  Receive Date: 20240527
  Receipt Date: 20240708
  Transmission Date: 20241016
  Serious: Yes (Other)
  Sender: JOHNSON AND JOHNSON
  Company Number: JP-JNJFOC-20240569715

PATIENT
  Age: 51 Year
  Sex: Male

DRUGS (12)
  1. EDURANT [Suspect]
     Active Substance: RILPIVIRINE HYDROCHLORIDE
     Indication: HIV infection
     Route: 048
     Dates: start: 20220906, end: 20221101
  2. RILPIVIRINE [Suspect]
     Active Substance: RILPIVIRINE
     Indication: HIV infection
     Route: 030
     Dates: start: 20221101, end: 20231003
  3. VOCABRIA [Suspect]
     Active Substance: CABOTEGRAVIR SODIUM
     Indication: HIV infection
     Route: 030
     Dates: start: 20221101, end: 20231003
  4. VOCABRIA [Suspect]
     Active Substance: CABOTEGRAVIR SODIUM
     Indication: HIV infection
  5. BIKTARVY [Concomitant]
     Active Substance: BICTEGRAVIR SODIUM\EMTRICITABINE\TENOFOVIR ALAFENAMIDE FUMARATE
     Indication: HIV infection
     Route: 048
     Dates: start: 20190620, end: 20220905
  6. BIKTARVY [Concomitant]
     Active Substance: BICTEGRAVIR SODIUM\EMTRICITABINE\TENOFOVIR ALAFENAMIDE FUMARATE
     Indication: HIV infection
     Route: 048
     Dates: start: 20231128
  7. ZOLPIDEM TARTRATE [Concomitant]
     Active Substance: ZOLPIDEM TARTRATE
     Dosage: DOSE UNKNOWN
     Route: 048
     Dates: start: 20170201
  8. FEBUXOSTAT [Concomitant]
     Active Substance: FEBUXOSTAT
     Dosage: DOSE UNKNOWN
     Route: 048
     Dates: start: 20170201
  9. JANUVIA [Concomitant]
     Active Substance: SITAGLIPTIN PHOSPHATE
     Indication: Diabetes mellitus
     Dosage: DOSE UNKNOWN
     Route: 048
     Dates: start: 20210316
  10. BROTIZOLAM [Concomitant]
     Active Substance: BROTIZOLAM
     Dosage: DOSE UNKNOWN
     Route: 048
     Dates: start: 20210316
  11. IPRAGLIFLOZIN L-PROLINE [Concomitant]
     Active Substance: IPRAGLIFLOZIN L-PROLINE
     Indication: Diabetes mellitus
     Dosage: DOSE UNKNOWN
     Route: 048
     Dates: start: 20211026
  12. VOCABRIA [Concomitant]
     Active Substance: CABOTEGRAVIR SODIUM
     Indication: HIV infection
     Route: 048
     Dates: start: 20220906, end: 20221101

REACTIONS (1)
  - Hepatitis B reactivation [Not Recovered/Not Resolved]

NARRATIVE: CASE EVENT DATE: 20230207
